FAERS Safety Report 24100372 (Version 3)
Quarter: 2025Q2

REPORT INFORMATION
  Report Type: Report from Study
  Country: US (occurrence: US)
  Receive Date: 20240717
  Receipt Date: 20250509
  Transmission Date: 20250717
  Serious: Yes (Hospitalization, Other)
  Sender: ABBVIE
  Company Number: US-ABBVIE-5839382

PATIENT
  Age: 54 Year
  Sex: Male

DRUGS (1)
  1. SKYRIZI [Suspect]
     Active Substance: RISANKIZUMAB-RZAA
     Indication: Product used for unknown indication
     Route: 058
     Dates: start: 20240601

REACTIONS (9)
  - Hip arthroplasty [Unknown]
  - Eye swelling [Unknown]
  - Lung disorder [Unknown]
  - Paraesthesia [Unknown]
  - Psoriasis [Unknown]
  - Atrial fibrillation [Unknown]
  - Hypersensitivity [Unknown]
  - Swelling of nose [Unknown]
  - Swelling face [Unknown]

NARRATIVE: CASE EVENT DATE: 20241001
